FAERS Safety Report 8445251 (Version 2)
Quarter: 2013Q2

REPORT INFORMATION
  Report Type: Spontaneous
  Country: US (occurrence: None)
  Receive Date: 20120104
  Receipt Date: 20120508
  Transmission Date: 20140414
  Serious: Yes (Other)
  Sender: FDA-Public Use
  Company Number: 2011HGS-002924

PATIENT
  Age: 48 Year
  Sex: Female
  Weight: 48.99 kg

DRUGS (1)
  1. BENLYSTA [Suspect]
     Indication: SYSTEMIC LUPUS ERYTHEMATOSUS
     Dosage: NTRAVENOUS DRIP
     Route: 041
     Dates: start: 20111117

REACTIONS (4)
  - CONFUSIONAL STATE [None]
  - AMNESIA [None]
  - HEADACHE [None]
  - Ischaemia [None]
